FAERS Safety Report 4649877-5 (Version None)
Quarter: 2005Q2

REPORT INFORMATION
  Report Type: 
  Country: None (occurrence: None)
  Receive Date: 20050502
  Receipt Date: 20020516
  Transmission Date: 20051028
  Serious: Yes (Hospitalization, Other)
  Sender: FDA-Public Use
  Company Number: US-MERCK-0205USA02069

PATIENT
  Age: 62 Year
  Sex: Female
  Weight: 75 kg

DRUGS (5)
  1. VIOXX [Suspect]
     Indication: RHEUMATOID ARTHRITIS
     Route: 048
     Dates: start: 20010401, end: 20011101
  2. VIOXX [Suspect]
     Indication: OSTEOARTHRITIS
     Route: 048
     Dates: start: 20010401, end: 20011101
  3. [THERAPY UNSPECIFIED] [Concomitant]
     Route: 065
  4. ACCUPRIL [Suspect]
     Route: 065
     Dates: end: 20011101
  5. LEVAQUIN [Suspect]
     Route: 065

REACTIONS (18)
  - ARTERIOSCLEROSIS [None]
  - AZOTAEMIA [None]
  - CARDIAC FAILURE CONGESTIVE [None]
  - CHOLECYSTITIS [None]
  - CHOLELITHIASIS [None]
  - EMOTIONAL DISTRESS [None]
  - GASTROOESOPHAGEAL REFLUX DISEASE [None]
  - HYDRONEPHROSIS [None]
  - LIVER FUNCTION TEST ABNORMAL [None]
  - LOBAR PNEUMONIA [None]
  - METABOLIC ACIDOSIS [None]
  - MYOCARDIAL INFARCTION [None]
  - NEPHRITIS INTERSTITIAL [None]
  - NEPHROLITHIASIS [None]
  - PLATELET COUNT INCREASED [None]
  - RENAL FAILURE ACUTE [None]
  - SWELLING [None]
  - URINARY TRACT INFECTION [None]
